FAERS Safety Report 10878500 (Version 1)
Quarter: 2015Q1

REPORT INFORMATION
  Report Type: Spontaneous
  Country: US (occurrence: US)
  Receive Date: 20150302
  Receipt Date: 20150302
  Transmission Date: 20150721
  Serious: No
  Sender: FDA-Public Use
  Company Number: US-ABBVIE-15P-163-1341047-00

PATIENT
  Age: 70 Year
  Sex: Male
  Weight: 81.72 kg

DRUGS (1)
  1. ANDROGEL [Suspect]
     Active Substance: TESTOSTERONE
     Indication: BLOOD TESTOSTERONE DECREASED
     Dosage: 2.5 GM PACKET
     Route: 061
     Dates: start: 201206, end: 201209

REACTIONS (3)
  - Joint lock [Not Recovered/Not Resolved]
  - Fatigue [Not Recovered/Not Resolved]
  - Blood testosterone decreased [Not Recovered/Not Resolved]

NARRATIVE: CASE EVENT DATE: 201207
